FAERS Safety Report 12790993 (Version 1)
Quarter: 2016Q3

REPORT INFORMATION
  Report Type: Spontaneous
  Country: US (occurrence: US)
  Receive Date: 20160929
  Receipt Date: 20160929
  Transmission Date: 20161109
  Serious: No
  Sender: FDA-Public Use
  Company Number: US-PFIZER INC-2016450950

PATIENT
  Age: 55 Year
  Sex: Female

DRUGS (11)
  1. IBUPROFEN. [Suspect]
     Active Substance: IBUPROFEN
  2. METHOTREXATE SODIUM. [Suspect]
     Active Substance: METHOTREXATE SODIUM
  3. HYDROCHLOROTHIAZIDE. [Suspect]
     Active Substance: HYDROCHLOROTHIAZIDE
  4. TRIMETHOPRIM. [Suspect]
     Active Substance: TRIMETHOPRIM
  5. HYDROXYCHLOROQUINE [Suspect]
     Active Substance: HYDROXYCHLOROQUINE
  6. PROBENECID. [Suspect]
     Active Substance: PROBENECID
  7. LASIX [Suspect]
     Active Substance: FUROSEMIDE
  8. CEPHALEXIN. [Suspect]
     Active Substance: CEPHALEXIN
  9. AZTREONAM. [Suspect]
     Active Substance: AZTREONAM
  10. SUMATRIPTAN SUCCINATE. [Suspect]
     Active Substance: SUMATRIPTAN SUCCINATE
  11. CILASTATIN/IMIPEN [Suspect]
     Active Substance: CILASTATIN SODIUM\IMIPENEM

REACTIONS (1)
  - Drug hypersensitivity [Unknown]
